FAERS Safety Report 6402494-9 (Version None)
Quarter: 2009Q4

REPORT INFORMATION
  Report Type: 
  Country: None (occurrence: None)
  Receive Date: 20091015
  Receipt Date: 20091006
  Transmission Date: 20100525
  Serious: Yes (Other)
  Sender: FDA-Public Use
  Company Number: GB-BAXTER-2009BH015698

PATIENT
  Age: 60 Year
  Sex: Female

DRUGS (5)
  1. CYCLOPHOSPHAMIDE [Suspect]
     Indication: CHORIOCARCINOMA
     Route: 065
  2. ACTINOMYCIN D [Suspect]
     Indication: CHORIOCARCINOMA
     Route: 065
  3. ETOPOSIDE GENERIC [Suspect]
     Indication: CHORIOCARCINOMA
     Route: 065
  4. METHOTREXATE GENERIC [Suspect]
     Indication: CHORIOCARCINOMA
     Route: 065
  5. VINCRISTINE SULFATE GENERIC [Suspect]
     Indication: CHORIOCARCINOMA
     Route: 065

REACTIONS (1)
  - NEUTROPENIC SEPSIS [None]
